FAERS Safety Report 6051555-5 (Version None)
Quarter: 2009Q1

REPORT INFORMATION
  Report Type: 
  Country: None (occurrence: None)
  Receive Date: 20090126
  Receipt Date: 20090122
  Transmission Date: 20090719
  Serious: Yes (Other)
  Sender: FDA-Public Use
  Company Number: B0548844A

PATIENT
  Age: 55 Year
  Sex: Female
  Weight: 53 kg

DRUGS (2)
  1. VALTREX [Suspect]
     Indication: HERPES ZOSTER
     Dosage: 500MG SIX TIMES PER DAY
     Route: 048
     Dates: start: 20080530, end: 20080605
  2. MEFENAMIC ACID [Concomitant]
     Indication: PAIN
     Dosage: 500MG THREE TIMES PER DAY
     Route: 048
     Dates: start: 20080530, end: 20080607

REACTIONS (2)
  - CHOLESTASIS [None]
  - HEPATIC ENZYME INCREASED [None]
